FAERS Safety Report 5322803-1 (Version None)
Quarter: 2007Q2

REPORT INFORMATION
  Report Type: 
  Country: None (occurrence: None)
  Receive Date: 20070511
  Receipt Date: 20070501
  Transmission Date: 20071010
  Serious: Yes (Other)
  Sender: FDA-Public Use
  Company Number: US-PFIZER INC-2007027329

PATIENT
  Sex: Male
  Weight: 90.7 kg

DRUGS (5)
  1. LIPITOR [Suspect]
     Indication: BLOOD CHOLESTEROL INCREASED
     Dates: start: 20050101, end: 20070314
  2. ZOCOR [Suspect]
  3. TRICOR [Suspect]
  4. NIACIN [Concomitant]
  5. ACETYLSALICYLIC ACID SRT [Concomitant]

REACTIONS (5)
  - ASTHENIA [None]
  - GAIT DISTURBANCE [None]
  - INSOMNIA [None]
  - POLYMYALGIA RHEUMATICA [None]
  - RHABDOMYOLYSIS [None]
